FAERS Safety Report 5019935-4 (Version None)
Quarter: 2006Q2

REPORT INFORMATION
  Report Type: 
  Country: None (occurrence: None)
  Receive Date: 20060602
  Receipt Date: 20060602
  Transmission Date: 20061013
  Serious: No
  Sender: FDA-Public Use
  Company Number: None

PATIENT
  Age: 49 Year
  Sex: Female
  Weight: 74.8435 kg

DRUGS (1)
  1. ZIACAM NASAL SPRAY  MAATRIXX [Suspect]
     Indication: NASOPHARYNGITIS
     Dosage: 1 SPRAY EA NOSTRIL    2 X DAILY   NASAL
     Route: 045
     Dates: start: 20050305, end: 20050322

REACTIONS (2)
  - AGEUSIA [None]
  - ANOSMIA [None]
